FAERS Safety Report 18420512 (Version 1)
Quarter: 2020Q4

REPORT INFORMATION
  Report Type: Spontaneous
  Country: FR (occurrence: FR)
  Receive Date: 20201023
  Receipt Date: 20201023
  Transmission Date: 20210114
  Serious: Yes (Hospitalization)
  Sender: FDA-Public Use
  Company Number: FR-MYLANLABS-2020M1088870

PATIENT
  Age: 55 Year
  Sex: Female
  Weight: 78 kg

DRUGS (4)
  1. GEMZAR [Suspect]
     Active Substance: GEMCITABINE HYDROCHLORIDE
     Indication: SMALL CELL LUNG CANCER METASTATIC
     Dosage: 1000 MILLIGRAM/SQ. METER C1J1 LE 31/08
     Route: 042
     Dates: start: 20200831, end: 20200831
  2. MORPHINE [Concomitant]
     Active Substance: MORPHINE
     Indication: PAIN
     Dosage: UNK
     Dates: start: 20200907
  3. PACLITAXEL. [Suspect]
     Active Substance: PACLITAXEL
     Indication: SMALL CELL LUNG CANCER METASTATIC
     Dosage: 175 MILLIGRAM/SQ. METER C1J1 LE 31/08
     Route: 042
     Dates: start: 20200831, end: 20200831
  4. ZARZIO [Suspect]
     Active Substance: FILGRASTIM
     Indication: SMALL CELL LUNG CANCER METASTATIC
     Dosage: 5 MICROGRAM/KILOGRAM, QD
     Route: 058
     Dates: start: 20200901, end: 20200903

REACTIONS (1)
  - Oedema peripheral [Recovered/Resolved]

NARRATIVE: CASE EVENT DATE: 20200909
